FAERS Safety Report 7337921-6 (Version None)
Quarter: 2011Q1

REPORT INFORMATION
  Report Type: 
  Country: None (occurrence: None)
  Receive Date: 20110308
  Receipt Date: 20110301
  Transmission Date: 20110831
  Serious: Yes (Death)
  Sender: FDA-Public Use
  Company Number: CA-ROCHE-763098

PATIENT
  Sex: Female

DRUGS (11)
  1. METFORMIN [Concomitant]
  2. DEXAMETHASONE [Concomitant]
     Dosage: DRUG REPORTED: DEXAMETHAZONE
  3. HYDROCHLOROTHIAZIDE [Concomitant]
  4. OMEPRAZOLE [Concomitant]
  5. DECADRON [Concomitant]
  6. DOMPERIDONE [Concomitant]
  7. GLYBURIDE [Concomitant]
  8. DILAUDID [Concomitant]
  9. HYDROMORPHONE HCL [Concomitant]
  10. NYSTATIN [Concomitant]
     Dosage: DRUG REPORTED: RATIO NYSTATIN
  11. CAPECITABINE [Suspect]
     Indication: COLON CANCER METASTATIC
     Route: 048
     Dates: start: 20110113, end: 20110221

REACTIONS (1)
  - DEATH [None]
